FAERS Safety Report 13727299 (Version 1)
Quarter: 2017Q3

REPORT INFORMATION
  Report Type: Spontaneous
  Country: GB (occurrence: GB)
  Receive Date: 20170706
  Receipt Date: 20170706
  Transmission Date: 20171127
  Serious: Yes (Other)
  Sender: FDA-Public Use
  Company Number: GB-ALLERGAN-1727651US

PATIENT
  Age: 27 Year
  Sex: Female

DRUGS (2)
  1. URSODEOXYCHOLIC ACID UNK [Suspect]
     Active Substance: URSODIOL
     Indication: CHOLESTASIS OF PREGNANCY
     Dosage: MAXIMUM 2 G
     Route: 065
  2. RIFAMPICIN [Suspect]
     Active Substance: RIFAMPIN
     Indication: CHOLESTASIS OF PREGNANCY
     Dosage: 150 MG, BID
     Route: 065

REACTIONS (4)
  - Pregnancy [Unknown]
  - Gestational diabetes [Unknown]
  - Off label use [Unknown]
  - Drug ineffective for unapproved indication [Unknown]
